FAERS Safety Report 7186456-2 (Version None)
Quarter: 2010Q4

REPORT INFORMATION
  Report Type: 
  Country: None (occurrence: None)
  Receive Date: 20101222
  Receipt Date: 20100621
  Transmission Date: 20110411
  Serious: No
  Sender: FDA-Public Use
  Company Number: US-AMGEN-TCS419767

PATIENT

DRUGS (2)
  1. ENBREL [Suspect]
     Indication: RHEUMATOID ARTHRITIS
     Dosage: UNK UNK, UNK
     Dates: start: 20100611
  2. NAPROXEN SODIUM [Concomitant]
     Dosage: UNK UNK, UNK
     Dates: start: 20100620

REACTIONS (2)
  - FEELING ABNORMAL [None]
  - VOMITING [None]
